FAERS Safety Report 13117194 (Version 2)
Quarter: 2017Q1

REPORT INFORMATION
  Report Type: Spontaneous
  Country: IT (occurrence: IT)
  Receive Date: 20170116
  Receipt Date: 20170301
  Transmission Date: 20170428
  Serious: Yes (Other)
  Sender: FDA-Public Use
  Company Number: IT-AMGEN-ITASP2017004562

PATIENT
  Age: 68 Year
  Sex: Female

DRUGS (2)
  1. PROLIA [Suspect]
     Active Substance: DENOSUMAB
     Indication: OSTEOPOROSIS
     Dosage: 60 MG/ML, CYCLICAL
     Route: 065
     Dates: start: 20140610, end: 20160610
  2. DIDROGYL [Concomitant]
     Active Substance: CALCIFEDIOL
     Dosage: 0.15 MG/ML (34 DROPS), UNK
     Route: 048
     Dates: start: 20140610, end: 20170104

REACTIONS (1)
  - Gingival abscess [Recovered/Resolved]

NARRATIVE: CASE EVENT DATE: 20161115
